FAERS Safety Report 13740946 (Version 2)
Quarter: 2017Q3

REPORT INFORMATION
  Report Type: Spontaneous
  Country: GB (occurrence: GB)
  Receive Date: 20170711
  Receipt Date: 20170807
  Transmission Date: 20171127
  Serious: Yes (Life-Threatening, Other)
  Sender: FDA-Public Use
  Company Number: GB-BRISTOL-MYERS SQUIBB COMPANY-BMS-2017-060334

PATIENT
  Age: 22 Year
  Sex: Female
  Weight: 50.8 kg

DRUGS (1)
  1. ABILIFY [Suspect]
     Active Substance: ARIPIPRAZOLE
     Indication: SCHIZOAFFECTIVE DISORDER
     Dosage: UNK
     Route: 048
     Dates: start: 2005, end: 2006

REACTIONS (6)
  - Mental status changes [Recovered/Resolved]
  - Musculoskeletal stiffness [Recovered/Resolved]
  - Neuroleptic malignant syndrome [Recovered/Resolved]
  - Hyperhidrosis [Recovered/Resolved]
  - Malaise [Recovered/Resolved]
  - Influenza like illness [Recovered/Resolved]

NARRATIVE: CASE EVENT DATE: 2006
